FAERS Safety Report 7409261-8 (Version None)
Quarter: 2011Q2

REPORT INFORMATION
  Report Type: 
  Country: None (occurrence: None)
  Receive Date: 20110412
  Receipt Date: 20110411
  Transmission Date: 20111010
  Serious: Yes (Death)
  Sender: FDA-Public Use
  Company Number: A0916440A

PATIENT
  Age: 50 Year
  Sex: Female

DRUGS (1)
  1. AVANDIA [Suspect]
     Indication: DIABETES MELLITUS
     Dosage: 4MG PER DAY
     Dates: start: 20010901, end: 20070301

REACTIONS (3)
  - CONGESTIVE CARDIOMYOPATHY [None]
  - CARDIAC ARREST [None]
  - DEATH [None]
